FAERS Safety Report 7928781-0 (Version None)
Quarter: 2011Q4

REPORT INFORMATION
  Report Type: 
  Country: None (occurrence: None)
  Receive Date: 20111118
  Receipt Date: 20110815
  Transmission Date: 20120403
  Serious: No
  Sender: FDA-Public Use
  Company Number: US-BAYER-2011-076730

PATIENT
  Age: 83 Year
  Sex: Male
  Weight: 82 kg

DRUGS (5)
  1. ALLOPURINOL [Concomitant]
  2. AMLODIPINE [Concomitant]
  3. CRESTOR [Concomitant]
  4. CENTRUM SILVER [Concomitant]
  5. ALEVE (CAPLET) [Suspect]
     Indication: ARTHRITIS
     Dosage: UNK
     Dates: start: 20110601

REACTIONS (2)
  - NOCTURIA [None]
  - NO ADVERSE EVENT [None]
